FAERS Safety Report 24692378 (Version 3)
Quarter: 2024Q4

REPORT INFORMATION
  Report Type: Report from Study
  Country: US (occurrence: US)
  Receive Date: 20241203
  Receipt Date: 20241231
  Transmission Date: 20250115
  Serious: Yes (Hospitalization, Other)
  Sender: TAKEDA
  Company Number: US-TAKEDA-2024TUS120017

PATIENT
  Age: 42 Year
  Sex: Male

DRUGS (14)
  1. ANTIHEMOPHILIC FACTOR HUMAN [Suspect]
     Active Substance: ANTIHEMOPHILIC FACTOR HUMAN
     Indication: Product used for unknown indication
     Dosage: 4050 INTERNATIONAL UNIT
  2. ANTIHEMOPHILIC FACTOR HUMAN [Suspect]
     Active Substance: ANTIHEMOPHILIC FACTOR HUMAN
     Dosage: 3000 INTERNATIONAL UNIT
  3. ANTIHEMOPHILIC FACTOR HUMAN [Suspect]
     Active Substance: ANTIHEMOPHILIC FACTOR HUMAN
     Dosage: 3200 INTERNATIONAL UNIT
  4. ANTIHEMOPHILIC FACTOR HUMAN [Suspect]
     Active Substance: ANTIHEMOPHILIC FACTOR HUMAN
     Dosage: 3510 INTERNATIONAL UNIT
  5. ANTIHEMOPHILIC FACTOR HUMAN [Suspect]
     Active Substance: ANTIHEMOPHILIC FACTOR HUMAN
     Dosage: 3200 INTERNATIONAL UNIT, 3/WEEK
  6. ANTIHEMOPHILIC FACTOR HUMAN [Suspect]
     Active Substance: ANTIHEMOPHILIC FACTOR HUMAN
     Dosage: 3200 INTERNATIONAL UNIT, 3/WEEK
  7. ANTIHEMOPHILIC FACTOR HUMAN [Suspect]
     Active Substance: ANTIHEMOPHILIC FACTOR HUMAN
     Dosage: 3200 INTERNATIONAL UNIT
  8. ANTIHEMOPHILIC FACTOR HUMAN [Suspect]
     Active Substance: ANTIHEMOPHILIC FACTOR HUMAN
     Dosage: 3500 INTERNATIONAL UNIT
  9. ADVATE [Suspect]
     Active Substance: ANTIHEMOPHILIC FACTOR, HUMAN RECOMBINANT
     Indication: Haemorrhage
     Dosage: 2000 INTERNATIONAL UNIT
  10. ADVATE [Suspect]
     Active Substance: ANTIHEMOPHILIC FACTOR, HUMAN RECOMBINANT
  11. ADVATE [Suspect]
     Active Substance: ANTIHEMOPHILIC FACTOR, HUMAN RECOMBINANT
  12. VITAMIN B12 [Suspect]
     Active Substance: CYANOCOBALAMIN
     Indication: Product used for unknown indication
     Dosage: UNK
  13. FLEXERIL [Concomitant]
     Active Substance: CYCLOBENZAPRINE HYDROCHLORIDE
     Dosage: UNK
  14. BACLOFEN [Concomitant]
     Active Substance: BACLOFEN
     Dosage: UNK

REACTIONS (51)
  - Cardiac arrest [Unknown]
  - Urinary retention [Unknown]
  - COVID-19 pneumonia [Unknown]
  - Nephrolithiasis [Recovered/Resolved]
  - Haemorrhage [Recovered/Resolved]
  - Heart rate increased [Recovered/Resolved]
  - Bacterial infection [Unknown]
  - Blood pressure abnormal [Unknown]
  - Oxygen saturation decreased [Recovered/Resolved]
  - Blood urine present [Recovered/Resolved]
  - Haematoma [Recovered/Resolved]
  - Contusion [Recovered/Resolved]
  - Haemarthrosis [Recovered/Resolved]
  - Thrombosis in device [Unknown]
  - Catheter site haemorrhage [Recovered/Resolved]
  - Artery dissection [Unknown]
  - Pharyngeal contusion [Unknown]
  - Neuralgia [Unknown]
  - Muscle haemorrhage [Recovering/Resolving]
  - Oedema [Unknown]
  - Aneurysm [Unknown]
  - Pharyngeal swelling [Recovered/Resolved]
  - Urinary tract infection [Unknown]
  - Fall [Unknown]
  - Joint injury [Unknown]
  - Pain [Unknown]
  - Swelling [Unknown]
  - Thyroid mass [Unknown]
  - Joint swelling [Recovered/Resolved]
  - Platelet disorder [Recovered/Resolved]
  - Decreased appetite [Unknown]
  - Blood potassium decreased [Unknown]
  - Gastrooesophageal reflux disease [Unknown]
  - Skin weeping [Unknown]
  - Administration site swelling [Unknown]
  - Catheter site swelling [Unknown]
  - Tongue blistering [Unknown]
  - Blood iron decreased [Unknown]
  - Vitamin B12 increased [Unknown]
  - Oropharyngeal discomfort [Unknown]
  - Speech disorder [Unknown]
  - Pain in extremity [Unknown]
  - White blood cell count increased [Unknown]
  - Gait disturbance [Not Recovered/Not Resolved]
  - Red blood cell count decreased [Unknown]
  - Arthralgia [Recovered/Resolved]
  - Infection [Unknown]
  - Malaise [Not Recovered/Not Resolved]
  - Pruritus [Recovered/Resolved]
  - Dizziness [Unknown]
  - Chest pain [Unknown]

NARRATIVE: CASE EVENT DATE: 20200726
